FAERS Safety Report 8277002-0 (Version None)
Quarter: 2012Q2

REPORT INFORMATION
  Report Type: 
  Country: None (occurrence: None)
  Receive Date: 20120406
  Receipt Date: 20120328
  Transmission Date: 20120825
  Serious: Yes (Hospitalization, Other)
  Sender: FDA-Public Use
  Company Number: 2012SP016931

PATIENT
  Age: 42 Year
  Sex: Female

DRUGS (7)
  1. NOVALGIN (METAMIZOLE SODIUM) [Suspect]
     Indication: PRODUCT USED FOR UNKNOWN INDICATION
     Dosage: 30 DF;UNK;UNK
     Dates: start: 20110502
  2. SURMONTIL [Suspect]
     Indication: PRODUCT USED FOR UNKNOWN INDICATION
     Dosage: 2400 MG;ONCE;UNK
     Dates: start: 20110502, end: 20110502
  3. GUAIFENESIN [Suspect]
     Indication: PRODUCT USED FOR UNKNOWN INDICATION
     Dosage: UNK;UNK
  4. REMERON [Suspect]
     Indication: PRODUCT USED FOR UNKNOWN INDICATION
     Dosage: 11 DF;ONCE;UNK
     Dates: start: 20110502, end: 20110502
  5. MEFENACID (MEFENAMIC ACID) [Suspect]
     Indication: PRODUCT USED FOR UNKNOWN INDICATION
     Dosage: 12 DF;ONCE;UNK
     Dates: start: 20110502, end: 20110502
  6. PREGABALIN [Suspect]
     Indication: PRODUCT USED FOR UNKNOWN INDICATION
     Dosage: UNK;UNK
  7. OXAZEPAM [Suspect]
     Indication: PRODUCT USED FOR UNKNOWN INDICATION
     Dosage: 100 DF;ONCE;PO
     Route: 048
     Dates: start: 20110502, end: 20110502

REACTIONS (11)
  - MULTIPLE DRUG OVERDOSE INTENTIONAL [None]
  - ALANINE AMINOTRANSFERASE INCREASED [None]
  - ELECTROCARDIOGRAM QT PROLONGED [None]
  - ACIDOSIS [None]
  - PNEUMONIA ASPIRATION [None]
  - SUICIDE ATTEMPT [None]
  - RHABDOMYOLYSIS [None]
  - ASPARTATE AMINOTRANSFERASE INCREASED [None]
  - COMA [None]
  - MYDRIASIS [None]
  - RESPIRATORY FAILURE [None]
